FAERS Safety Report 9717237 (Version 1)
Quarter: 2013Q4

REPORT INFORMATION
  Report Type: Spontaneous
  Country: FR (occurrence: FR)
  Receive Date: 20131127
  Receipt Date: 20131127
  Transmission Date: 20140711
  Serious: Yes (Hospitalization)
  Sender: FDA-Public Use
  Company Number: FR-PFIZER INC-2013335170

PATIENT
  Age: 45 Year
  Sex: Male

DRUGS (1)
  1. TAZOCILLINE [Suspect]
     Indication: SEPTIC SHOCK
     Dosage: UNK
     Route: 042
     Dates: start: 20131021, end: 20131021

REACTIONS (1)
  - Anaphylactic shock [Recovered/Resolved]
